FAERS Safety Report 16767836 (Version 2)
Quarter: 2019Q3

REPORT INFORMATION
  Report Type: Spontaneous
  Country: US (occurrence: US)
  Receive Date: 20190903
  Receipt Date: 20190930
  Transmission Date: 20191005
  Serious: Yes (Disabling)
  Sender: FDA-Public Use
  Company Number: PHEH2019US036030

PATIENT
  Age: 49 Year
  Sex: Female
  Weight: 69.39 kg

DRUGS (3)
  1. COSENTYX [Suspect]
     Active Substance: SECUKINUMAB
     Dosage: UNK
     Route: 065
     Dates: start: 20190812
  2. COSENTYX [Suspect]
     Active Substance: SECUKINUMAB
     Indication: PSORIASIS
     Dosage: 300 MG, QW
     Route: 058
     Dates: start: 20190729, end: 20190827
  3. TOPAMAX [Suspect]
     Active Substance: TOPIRAMATE
     Indication: HEADACHE
     Dosage: UNK
     Route: 065

REACTIONS (14)
  - Pyrexia [Unknown]
  - Vomiting [Unknown]
  - Joint swelling [Unknown]
  - Burning sensation [Unknown]
  - Fatigue [Recovering/Resolving]
  - Chills [Unknown]
  - Histone antibody positive [Recovering/Resolving]
  - Nausea [Unknown]
  - Pain [Unknown]
  - Weight decreased [Unknown]
  - Decreased appetite [Unknown]
  - Diarrhoea [Unknown]
  - Arthralgia [Recovering/Resolving]
  - Antinuclear antibody increased [Recovering/Resolving]

NARRATIVE: CASE EVENT DATE: 20190827
